FAERS Safety Report 5026450-0 (Version None)
Quarter: 2006Q2

REPORT INFORMATION
  Report Type: 
  Country: None (occurrence: None)
  Receive Date: 20060615
  Receipt Date: 20060607
  Transmission Date: 20061013
  Serious: Yes (Death)
  Sender: FDA-Public Use
  Company Number: GB-JNJFOC-20050201099

PATIENT
  Sex: Male

DRUGS (1)
  1. REMICADE [Suspect]
     Indication: CROHN'S DISEASE
     Dosage: 2 INFUSIONS

REACTIONS (3)
  - DISSEMINATED TUBERCULOSIS [None]
  - LOWER RESPIRATORY TRACT INFECTION [None]
  - RESPIRATORY DISTRESS [None]
